FAERS Safety Report 4519839-7 (Version None)
Quarter: 2004Q4

REPORT INFORMATION
  Report Type: 
  Country: None (occurrence: None)
  Receive Date: 20041207
  Receipt Date: 20041125
  Transmission Date: 20050328
  Serious: Yes (Other)
  Sender: FDA-Public Use
  Company Number: PHBS2004JP15852

PATIENT
  Age: 42 Year
  Sex: Female

DRUGS (1)
  1. DICLOFENAC [Suspect]
     Indication: SPONDYLITIC MYELOPATHY
     Route: 048
     Dates: start: 20031201

REACTIONS (2)
  - ADRENAL INSUFFICIENCY [None]
  - NEPHRITIS INTERSTITIAL [None]
